FAERS Safety Report 23292524 (Version 2)
Quarter: 2024Q1

REPORT INFORMATION
  Report Type: Spontaneous
  Country: US (occurrence: US)
  Receive Date: 20231213
  Receipt Date: 20240103
  Transmission Date: 20240410
  Serious: No
  Sender: FDA-Public Use
  Company Number: US-REATA PHARMACEUTICALS INC.-2023USRTAOMA000329

PATIENT

DRUGS (2)
  1. SKYCLARYS [Suspect]
     Active Substance: OMAVELOXOLONE
     Indication: Friedreich^s ataxia
     Dosage: 150 MILLIGRAM, BY MOUTH ONCE DAILY
     Route: 048
     Dates: start: 20230817
  2. SKYCLARYS [Suspect]
     Active Substance: OMAVELOXOLONE
     Dosage: 2 DOSAGE FORM, QD
     Route: 048
     Dates: start: 202309

REACTIONS (6)
  - Anxiety [Unknown]
  - Emotional distress [Unknown]
  - Reflux gastritis [Unknown]
  - Dyspepsia [Unknown]
  - Diarrhoea [None]
  - Vomiting [Unknown]

NARRATIVE: CASE EVENT DATE: 20230101
